FAERS Safety Report 21721041 (Version 1)
Quarter: 2022Q4

REPORT INFORMATION
  Report Type: Report from Study
  Country: ES (occurrence: ES)
  Receive Date: 20221213
  Receipt Date: 20221213
  Transmission Date: 20230113
  Serious: Yes (Other)
  Sender: FDA-Public Use
  Company Number: ES-ASTELLAS-2022US044035

PATIENT

DRUGS (2)
  1. MIRABEGRON [Suspect]
     Active Substance: MIRABEGRON
     Indication: Pulmonary hypertension
     Route: 065
  2. MIRABEGRON [Suspect]
     Active Substance: MIRABEGRON
     Indication: Cardiac failure
     Dosage: UP TO A MAXIMUM OF 200MG DAILY, UPTITRATED EVERY 2 WEEKS
     Route: 065

REACTIONS (2)
  - Mitral valve disease [Unknown]
  - Cardiac valve rupture [Unknown]
